FAERS Safety Report 6307974-2 (Version None)
Quarter: 2009Q3

REPORT INFORMATION
  Report Type: 
  Country: None (occurrence: None)
  Receive Date: 20090813
  Receipt Date: 20090804
  Transmission Date: 20100115
  Serious: Yes (Hospitalization)
  Sender: FDA-Public Use
  Company Number: FR-ASTRAZENECA-2009SE06782

PATIENT
  Age: 1002 Month
  Sex: Female

DRUGS (3)
  1. NEXIUM [Suspect]
     Route: 048
  2. LODALES [Suspect]
     Indication: DYSLIPIDAEMIA
     Route: 048
     Dates: end: 20090301
  3. FLUDEX [Suspect]
     Indication: HYPERTENSION
     Route: 048

REACTIONS (1)
  - APLASIA PURE RED CELL [None]
